FAERS Safety Report 4688645-5 (Version None)
Quarter: 2005Q2

REPORT INFORMATION
  Report Type: 
  Country: None (occurrence: None)
  Receive Date: 20050608
  Receipt Date: 20050216
  Transmission Date: 20051028
  Serious: No
  Sender: FDA-Public Use
  Company Number: 2005-BP-01227BP

PATIENT
  Age: 75 Year
  Sex: Male
  Weight: 81.8 kg

DRUGS (10)
  1. SPIRIVA [Suspect]
     Indication: CHRONIC OBSTRUCTIVE PULMONARY DISEASE
     Dosage: 18 MCG (18 MCG, 1 IN 1 D), IH
     Route: 055
     Dates: start: 20050103, end: 20050129
  2. SPIRIVA [Suspect]
  3. ATROVENT [Concomitant]
  4. NIACIN [Concomitant]
  5. MAGNESIUM [Concomitant]
  6. METOPROLOL TARTRATE [Concomitant]
  7. PRAVACHOL [Concomitant]
  8. AMITRIPTYLINE HCL [Concomitant]
  9. HALCION [Concomitant]
  10. ACETYLSALICYLIC ACID SRT [Concomitant]

REACTIONS (2)
  - CHEST PAIN [None]
  - DRY MOUTH [None]
